FAERS Safety Report 14562314 (Version 1)
Quarter: 2018Q1

REPORT INFORMATION
  Report Type: Spontaneous
  Country: US (occurrence: US)
  Receive Date: 20180222
  Receipt Date: 20180222
  Transmission Date: 20180509
  Serious: Yes (Hospitalization, Other)
  Sender: FDA-Public Use
  Company Number: US-ELI_LILLY_AND_COMPANY-US201802006607

PATIENT
  Sex: Male

DRUGS (1)
  1. HUMATROPE [Suspect]
     Active Substance: SOMATROPIN
     Indication: PRODUCT USED FOR UNKNOWN INDICATION
     Dosage: 0.7 MG, DAILY
     Route: 065
     Dates: end: 20180210

REACTIONS (16)
  - Hypophagia [Unknown]
  - Atrial fibrillation [Not Recovered/Not Resolved]
  - Cortisol increased [Recovered/Resolved]
  - Decreased appetite [Unknown]
  - Drug effect decreased [Not Recovered/Not Resolved]
  - Disturbance in attention [Unknown]
  - Drug withdrawal syndrome [Unknown]
  - Pain [Unknown]
  - Neoplasm progression [Recovered/Resolved]
  - Asthenia [Not Recovered/Not Resolved]
  - Restlessness [Unknown]
  - Blood glucose increased [Not Recovered/Not Resolved]
  - Ejection fraction decreased [Not Recovered/Not Resolved]
  - Pituitary-dependent Cushing^s syndrome [Not Recovered/Not Resolved]
  - Sleep disorder [Not Recovered/Not Resolved]
  - Ventricular tachycardia [Not Recovered/Not Resolved]

NARRATIVE: CASE EVENT DATE: 2017
